FAERS Safety Report 8078918-0 (Version None)
Quarter: 2012Q1

REPORT INFORMATION
  Report Type: 
  Country: None (occurrence: None)
  Receive Date: 20120128
  Receipt Date: 20110425
  Transmission Date: 20120608
  Serious: No
  Sender: FDA-Public Use
  Company Number: US-ABBOTT-11P-163-0721563-00

PATIENT
  Age: 49 Year
  Sex: Female

DRUGS (8)
  1. NORTRIPTYLINE HCL [Concomitant]
     Indication: PRURITUS
  2. MULTI-VITAMINS [Concomitant]
     Indication: PRODUCT USED FOR UNKNOWN INDICATION
  3. CALTRATE [Concomitant]
     Indication: PRODUCT USED FOR UNKNOWN INDICATION
  4. EVINE-28 [Concomitant]
     Indication: CONTRACEPTION
  5. POTASSIUM [Concomitant]
     Indication: MINERAL SUPPLEMENTATION
  6. HUMIRA [Suspect]
  7. HYDROCHLOROTHIAZIDE [Concomitant]
     Indication: ABDOMINAL DISTENSION
     Dosage: TWICE DAILY
  8. HUMIRA [Suspect]
     Indication: COLITIS ULCERATIVE
     Dates: start: 20100701

REACTIONS (1)
  - WEIGHT INCREASED [None]
